FAERS Safety Report 18160820 (Version 1)
Quarter: 2020Q3

REPORT INFORMATION
  Report Type: Spontaneous
  Country: US (occurrence: US)
  Receive Date: 20200818
  Receipt Date: 20200818
  Transmission Date: 20201103
  Serious: No
  Sender: FDA-Public Use
  Company Number: US-COLGATE PALMOLIVE COMPANY-20190902410

PATIENT
  Age: 42 Year
  Sex: Male

DRUGS (2)
  1. COLGATE TOTAL WHITENING [Suspect]
     Active Substance: SODIUM FLUORIDE\TRICLOSAN
     Dosage: USED TWICE,3/4 FILLS BRISTLES?2?3 TIMES A DAY
     Route: 048
     Dates: start: 20190913, end: 20190917
  2. COLGATE TOTAL WHITENING [Suspect]
     Active Substance: SODIUM FLUORIDE\TRICLOSAN
     Indication: DENTAL DISORDER PROPHYLAXIS
     Dosage: UNK
     Route: 048

REACTIONS (3)
  - Dry mouth [Recovered/Resolved]
  - Product taste abnormal [Recovered/Resolved]
  - Dry throat [Recovered/Resolved]

NARRATIVE: CASE EVENT DATE: 201909
